FAERS Safety Report 6263465-9 (Version None)
Quarter: 2009Q3

REPORT INFORMATION
  Report Type: 
  Country: None (occurrence: None)
  Receive Date: 20090710
  Receipt Date: 20090527
  Transmission Date: 20100115
  Serious: No
  Sender: FDA-Public Use
  Company Number: A0776847A

PATIENT
  Age: 76 Year
  Sex: Male

DRUGS (5)
  1. FLOVENT [Suspect]
     Indication: ASTHMA
     Dosage: 1PUFF TWICE PER DAY
     Route: 055
  2. SIMVASTATIN [Concomitant]
  3. ACIPHEX [Concomitant]
  4. SINGULAIR [Concomitant]
  5. CLONAZEPAM [Concomitant]

REACTIONS (10)
  - ASTHENIA [None]
  - DYSPNOEA [None]
  - HYPERSOMNIA [None]
  - ILL-DEFINED DISORDER [None]
  - MALAISE [None]
  - PRODUCT QUALITY ISSUE [None]
  - RHINORRHOEA [None]
  - SINUSITIS [None]
  - SKIN LESION [None]
  - VISION BLURRED [None]
